FAERS Safety Report 8119038 (Version 2)
Quarter: 2012Q4

REPORT INFORMATION
  Report Type: Report from Study
  Country: JP (occurrence: JP)
  Receive Date: 20110902
  Receipt Date: 20121022
  Transmission Date: 20130627
  Serious: Yes (Other)
  Sender: FDA-Public Use
  Company Number: PHHY2011JP76940

PATIENT
  Age: 67 Year
  Sex: Male
  Weight: 77 kg

DRUGS (3)
  1. CO-DIOVAN [Suspect]
     Indication: HYPERTENSION
     Dosage: 1 DF, QD
     Route: 048
     Dates: start: 20100526
  2. LASIX [Concomitant]
     Indication: HYPERTENSION
     Dosage: 20 mg, UNK
     Route: 048
     Dates: start: 20110111, end: 20110125
  3. PLETAAL [Concomitant]
     Dosage: 100 mg, UNK
     Route: 048
     Dates: start: 20100526, end: 20110125

REACTIONS (4)
  - Blood pressure diastolic decreased [Unknown]
  - Atrioventricular block second degree [Recovered/Resolved]
  - Blood uric acid increased [Recovered/Resolved]
  - Blood glucose increased [Recovering/Resolving]
